FAERS Safety Report 20920863 (Version 1)
Quarter: 2022Q2

REPORT INFORMATION
  Report Type: Spontaneous
  Country: US (occurrence: None)
  Receive Date: 20220606
  Receipt Date: 20220606
  Transmission Date: 20220721
  Serious: No
  Sender: FDA-Public Use
  Company Number: None

PATIENT
  Age: 0 Year
  Sex: Female

DRUGS (14)
  1. AMBRISENTAN [Suspect]
     Active Substance: AMBRISENTAN
     Indication: Hypothyroidism
     Dosage: FREQUENCY : DAILY;?
     Route: 048
  2. TRAMADOL HCL [Concomitant]
     Active Substance: TRAMADOL HYDROCHLORIDE
  3. LEVOTHYROXINE SODIUM [Concomitant]
     Active Substance: LEVOTHYROXINE SODIUM
  4. TYLENOL EXTRA STRENGTH [Concomitant]
     Active Substance: ACETAMINOPHEN
  5. VALSARTAN/HYDROCHLOROTHIA [Concomitant]
  6. LOVASTATIN [Concomitant]
     Active Substance: LOVASTATIN
  7. LETAIRIS [Concomitant]
     Active Substance: AMBRISENTAN
  8. FUROSEMIDE [Concomitant]
     Active Substance: FUROSEMIDE
  9. LEVOCETIRIZINE DIHYDROCHL [Concomitant]
  10. ADEMPAS [Concomitant]
     Active Substance: RIOCIGUAT
  11. COLCRYS [Concomitant]
     Active Substance: COLCHICINE
  12. PREDNISONE [Concomitant]
     Active Substance: PREDNISONE
  13. CILOSTAZOL [Concomitant]
     Active Substance: CILOSTAZOL
  14. LETAIRIS [Concomitant]
     Active Substance: AMBRISENTAN

REACTIONS (1)
  - Chest discomfort [None]

NARRATIVE: CASE EVENT DATE: 19880823
